FAERS Safety Report 23678478 (Version 1)
Quarter: 2024Q1

REPORT INFORMATION
  Report Type: Report from Study
  Country: US (occurrence: US)
  Receive Date: 20240327
  Receipt Date: 20240327
  Transmission Date: 20240410
  Serious: Yes (Hospitalization, Other)
  Sender: FDA-Public Use
  Company Number: US-ABBVIE-5565691

PATIENT
  Age: 67 Year
  Sex: Male

DRUGS (4)
  1. SKYRIZI [Suspect]
     Active Substance: RISANKIZUMAB-RZAA
     Indication: Crohn^s disease
     Route: 058
     Dates: start: 20220326
  2. SKYRIZI [Suspect]
     Active Substance: RISANKIZUMAB-RZAA
     Dosage: DISCONTINUED 2023
     Route: 058
     Dates: start: 20230615
  3. SKYRIZI [Suspect]
     Active Substance: RISANKIZUMAB-RZAA
     Route: 058
     Dates: start: 20230712, end: 20231225
  4. SKYRIZI [Suspect]
     Active Substance: RISANKIZUMAB-RZAA
     Route: 058

REACTIONS (10)
  - Pneumothorax [Recovering/Resolving]
  - Rib fracture [Recovering/Resolving]
  - Frequent bowel movements [Unknown]
  - Fall [Unknown]
  - COVID-19 [Recovered/Resolved]
  - Loss of consciousness [Unknown]
  - Cough [Unknown]
  - Pneumonia [Recovering/Resolving]
  - Musculoskeletal chest pain [Unknown]
  - Hypotension [Unknown]

NARRATIVE: CASE EVENT DATE: 20231101
